FAERS Safety Report 10052608 (Version 1)
Quarter: 2014Q2

REPORT INFORMATION
  Report Type: Spontaneous
  Country: GB (occurrence: GB)
  Receive Date: 20140402
  Receipt Date: 20140402
  Transmission Date: 20141212
  Serious: Yes (Hospitalization)
  Sender: FDA-Public Use
  Company Number: GB-TEVA-470949ISR

PATIENT
  Age: 74 Year
  Sex: Female

DRUGS (9)
  1. BORTEZOMIB [Suspect]
     Indication: PLASMA CELL MYELOMA
     Dosage: 2.1 MILLIGRAM DAILY; 2.1 MG, QD
     Route: 042
     Dates: start: 20120807, end: 20120904
  2. BORTEZOMIB [Suspect]
     Indication: RENAL FAILURE
  3. DOXAZOSIN [Suspect]
     Indication: HYPERTENSION
     Dosage: 8 MILLIGRAM DAILY; 4 MG, BID
     Route: 048
     Dates: start: 2009, end: 20120907
  4. NIFEDIPINE [Suspect]
     Indication: HYPERTENSION
     Dosage: 90 MILLIGRAM DAILY; 90 MG, QD
     Route: 048
     Dates: start: 2009, end: 20120907
  5. PROPRANOLOL [Suspect]
     Indication: HYPERTENSION
     Dosage: 80 MILLIGRAM DAILY; 40 MG, BID
     Route: 048
     Dates: start: 2009, end: 20120907
  6. DEXAMETHASONE [Suspect]
     Indication: PLASMA CELL MYELOMA
     Dosage: 20 MILLIGRAM DAILY; 20 MG, QD
     Route: 048
     Dates: start: 20120807
  7. DEXAMETHASONE [Suspect]
     Indication: RENAL FAILURE
  8. BHQ880 [Suspect]
     Indication: RENAL FAILURE
     Dosage: 700 MILLIGRAM DAILY; 700 MG, QD
     Route: 042
     Dates: start: 20120807
  9. BHQ880 [Suspect]
     Indication: PLASMA CELL MYELOMA

REACTIONS (1)
  - Renal failure acute [Recovering/Resolving]
